FAERS Safety Report 15627453 (Version 1)
Quarter: 2018Q4

REPORT INFORMATION
  Report Type: Spontaneous
  Country: JP (occurrence: JP)
  Receive Date: 20181116
  Receipt Date: 20181116
  Transmission Date: 20190205
  Serious: Yes (Death, Hospitalization, Other)
  Sender: FDA-Public Use
  Company Number: PHBS1998JP10413

PATIENT
  Age: 8 Year
  Sex: Female
  Weight: 28 kg

DRUGS (8)
  1. METHOTREXATE (METHOTREXATE) [Concomitant]
     Active Substance: METHOTREXATE
     Indication: PRODUCT USED FOR UNKNOWN INDICATION
     Route: 065
  2. CARBENIN (GALENIC /PANIPENEM/BETAMIPRON/) [Concomitant]
     Indication: PRODUCT USED FOR UNKNOWN INDICATION
     Dosage: 2100 MG, UNK
     Route: 042
     Dates: start: 19960308, end: 19960328
  3. GASTER [Concomitant]
     Active Substance: FAMOTIDINE
     Indication: PRODUCT USED FOR UNKNOWN INDICATION
     Dosage: 10 MG, UNK
     Route: 042
     Dates: start: 19960304, end: 19960328
  4. SANDIMMUN (CICLOSPORIN) [Suspect]
     Active Substance: CYCLOSPORINE
     Indication: BONE MARROW TRANSPLANT
     Dosage: 60 MG, UNK
     Route: 042
     Dates: start: 19960303, end: 19960425
  5. MABLIN (BUSULFAN) [Concomitant]
     Indication: PRODUCT USED FOR UNKNOWN INDICATION
     Route: 065
  6. ZOVIRAX [Concomitant]
     Active Substance: ACYCLOVIR
     Indication: PRODUCT USED FOR UNKNOWN INDICATION
     Dosage: 400 MG, UNK
     Route: 042
     Dates: start: 19960220, end: 19960405
  7. PREDONINE [Concomitant]
     Active Substance: PREDNISOLONE
     Indication: PRODUCT USED FOR UNKNOWN INDICATION
     Dosage: 45 MG, UNK
     Route: 042
     Dates: start: 19960304, end: 19960328
  8. NEUTROGIN (LENOGRASTIM) [Concomitant]
     Indication: PRODUCT USED FOR UNKNOWN INDICATION
     Dosage: 125 UG, UNK
     Route: 042
     Dates: start: 19960308, end: 19960328

REACTIONS (8)
  - Encephalopathy [Recovering/Resolving]
  - Loss of consciousness [Unknown]
  - Seizure [Recovered/Resolved with Sequelae]
  - Altered state of consciousness [Recovered/Resolved with Sequelae]
  - Tremor [Unknown]
  - Pneumonia [Fatal]
  - Confusional state [Unknown]
  - Graft versus host disease [Unknown]

NARRATIVE: CASE EVENT DATE: 19960326
